FAERS Safety Report 7616071 (Version 3)
Quarter: 2012Q4

REPORT INFORMATION
  Report Type: Report from Study
  Country: JP (occurrence: JP)
  Receive Date: 20101004
  Receipt Date: 20120926
  Transmission Date: 20130627
  Serious: Yes (Death)
  Sender: FDA-Public Use
  Company Number: JP-ROCHE-724320

PATIENT
  Age: 68 Year
  Sex: Female
  Weight: 38 kg

DRUGS (7)
  1. AVASTIN [Suspect]
     Indication: LARGE CELL CARCINOMA OF THE RESPIRATORY TRACT STAGE UNSPECIFIED
     Route: 041
     Dates: start: 20100714, end: 20100714
  2. CARBOPLATIN [Suspect]
     Indication: LARGE CELL CARCINOMA OF THE RESPIRATORY TRACT STAGE UNSPECIFIED
     Route: 041
     Dates: start: 20100714, end: 20100714
  3. PACLITAXEL [Suspect]
     Indication: LARGE CELL CARCINOMA OF THE RESPIRATORY TRACT STAGE UNSPECIFIED
     Route: 041
     Dates: start: 20100714, end: 20100714
  4. ALIMTA [Suspect]
     Indication: LARGE CELL CARCINOMA OF THE RESPIRATORY TRACT STAGE UNSPECIFIED
     Route: 041
     Dates: start: 20100811, end: 20100811
  5. CISPLATIN [Suspect]
     Indication: LARGE CELL CARCINOMA OF THE RESPIRATORY TRACT STAGE UNSPECIFIED
     Route: 041
     Dates: start: 20100811, end: 20100811
  6. AMOBAN [Concomitant]
     Route: 048
     Dates: start: 20100713, end: 20100825
  7. UNSPECIFIED INGREDIENT [Concomitant]
     Dosage: FORM: PERORAL AGENT
     Route: 048
     Dates: start: 20100713, end: 20100825

REACTIONS (5)
  - Haemoptysis [Fatal]
  - Loss of consciousness [Fatal]
  - Cardio-respiratory arrest [Fatal]
  - Epistaxis [Unknown]
  - Haemoptysis [Unknown]
